FAERS Safety Report 9285838 (Version 1)
Quarter: 2013Q2

REPORT INFORMATION
  Report Type: Spontaneous
  Country: US (occurrence: None)
  Receive Date: 20130509
  Receipt Date: 20130509
  Transmission Date: 20140414
  Serious: Yes (Death)
  Sender: FDA-Public Use
  Company Number: DKLU1090728

PATIENT
  Age: 31 Year
  Sex: Female

DRUGS (2)
  1. DESOXYN (METHAMPHETAMINE HCL) [Suspect]
     Indication: PRODUCT USED FOR UNKNOWN INDICATION
  2. AMPHETAMINE (AMFETAMINE) (AMFETAMINE) [Concomitant]

REACTIONS (3)
  - Meningitis pneumococcal [None]
  - Snoring [None]
  - Resuscitation [None]
